FAERS Safety Report 20020147 (Version 4)
Quarter: 2021Q4

REPORT INFORMATION
  Report Type: Spontaneous
  Country: RU (occurrence: RU)
  Receive Date: 20211101
  Receipt Date: 20211130
  Transmission Date: 20220304
  Serious: Yes (Death, Life-Threatening, Hospitalization)
  Sender: FDA-Public Use
  Company Number: RU-CELGENE-RUS-20211006434

PATIENT
  Age: 60 Year
  Sex: Female
  Weight: 65.2 kg

DRUGS (25)
  1. AZACITIDINE [Suspect]
     Active Substance: AZACITIDINE
     Indication: Myelodysplastic syndrome
     Dosage: 75 MILLIGRAM
     Route: 058
     Dates: start: 20210812, end: 20211013
  2. VENETOCLAX [Suspect]
     Active Substance: VENETOCLAX
     Indication: Myelodysplastic syndrome
     Dosage: DAY 1 THROUGH 14 OF EACH CYCLE
     Route: 048
     Dates: start: 20210812, end: 20210825
  3. VENETOCLAX [Suspect]
     Active Substance: VENETOCLAX
     Dosage: DAY 1 THROUGH 14 OF EACH CYCLE
     Route: 048
     Dates: start: 20210909, end: 20211020
  4. OMEPRAZOLE [Concomitant]
     Active Substance: OMEPRAZOLE
     Indication: Stress ulcer
     Dosage: 40 MILLIGRAM
     Route: 048
     Dates: start: 20210803, end: 20210820
  5. OMEPRAZOLE [Concomitant]
     Active Substance: OMEPRAZOLE
     Dosage: 20 MILLIGRAM
     Route: 048
     Dates: start: 20210821
  6. ACYCLOVIR [Concomitant]
     Active Substance: ACYCLOVIR
     Indication: Viral infection
     Dosage: 600 MILLIGRAM
     Route: 048
     Dates: start: 20210803
  7. SPIRONOLACTONE [Concomitant]
     Active Substance: SPIRONOLACTONE
     Indication: Diuretic therapy
     Dosage: 25 MILLIGRAM
     Route: 048
     Dates: start: 20210825, end: 20211024
  8. FOLIC ACID [Concomitant]
     Active Substance: FOLIC ACID
     Indication: Folate deficiency
     Dosage: 15 MILLIGRAM
     Route: 048
     Dates: start: 20210830
  9. AMIODARONE [Concomitant]
     Active Substance: AMIODARONE
     Indication: Atrial fibrillation
     Dosage: 400 MILLIGRAM
     Route: 048
     Dates: start: 20210914
  10. AMIODARONE [Concomitant]
     Active Substance: AMIODARONE
     Indication: Extrasystoles
  11. ONDANSETRON [Concomitant]
     Active Substance: ONDANSETRON
     Indication: Prophylaxis of nausea and vomiting
     Dosage: 8 MILLIGRAM
     Route: 041
     Dates: start: 20211007, end: 20211013
  12. HEPARIN [Concomitant]
     Active Substance: HEPARIN SODIUM
     Indication: Thrombophlebitis
     Route: 058
     Dates: start: 20210911
  13. PIPERACILLIN [Concomitant]
     Active Substance: PIPERACILLIN
     Indication: Febrile neutropenia
     Dosage: 13500 MILLIGRAM
     Route: 040
     Dates: start: 20211011, end: 20211012
  14. VANCOMYCIN [Concomitant]
     Active Substance: VANCOMYCIN
     Indication: Febrile neutropenia
     Dosage: 2000 MILLIGRAM
     Route: 040
     Dates: start: 20211011, end: 20211012
  15. FUROSEMIDE [Concomitant]
     Active Substance: FUROSEMIDE
     Indication: Electrolyte imbalance
     Route: 041
     Dates: start: 20211019, end: 20211025
  16. SODIUM CHLORIDE [Concomitant]
     Active Substance: SODIUM CHLORIDE
     Indication: Electrolyte imbalance
     Dosage: 500 MILLILITER
     Route: 041
     Dates: start: 20211018, end: 20211019
  17. SODIUM CHLORIDE [Concomitant]
     Active Substance: SODIUM CHLORIDE
     Dosage: 1000 MILLILITER
     Route: 041
     Dates: start: 20211019, end: 20211024
  18. POTASSIUM CHLORIDE [Concomitant]
     Active Substance: POTASSIUM CHLORIDE
     Indication: Electrolyte imbalance
     Dosage: 70 MILLILITER
     Route: 041
     Dates: start: 20211018, end: 20211022
  19. MAGNESIUM SULFATE [Concomitant]
     Active Substance: MAGNESIUM SULFATE
     Indication: Electrolyte imbalance
     Dosage: 5 MILLILITER
     Route: 041
     Dates: start: 20211018, end: 20211024
  20. METOPROLOL [Concomitant]
     Active Substance: METOPROLOL
     Indication: Ventricular extrasystoles
     Dosage: 12.5 MILLIGRAM
     Route: 048
     Dates: start: 20211018
  21. ALBUMIN HUMAN [Concomitant]
     Active Substance: ALBUMIN HUMAN
     Indication: Hypoalbuminaemia
     Dosage: 100 MILLILITER
     Route: 041
     Dates: start: 20211020, end: 20211028
  22. METHYLPREDNISOLONE [Concomitant]
     Active Substance: METHYLPREDNISOLONE
     Indication: Respiratory failure
     Dosage: 125 MILLIGRAM
     Route: 041
     Dates: start: 20211020, end: 20211024
  23. NOREPINEPHRINE [Concomitant]
     Active Substance: NOREPINEPHRINE
     Indication: Myocardial injury
     Dosage: 0.25 MCG/KG/MIN
     Route: 065
     Dates: start: 20211020, end: 20211023
  24. NOREPINEPHRINE [Concomitant]
     Active Substance: NOREPINEPHRINE
     Indication: Hypotension
     Dosage: 0.4 MCG/KG/MIN
     Route: 041
     Dates: start: 20211029
  25. DEXTROSE [Concomitant]
     Active Substance: DEXTROSE
     Indication: Electrolyte imbalance
     Dosage: 500 MILLILITER
     Route: 041
     Dates: start: 20211025

REACTIONS (3)
  - Septic shock [Fatal]
  - Pneumonia [Recovered/Resolved]
  - Pneumonia [Unknown]

NARRATIVE: CASE EVENT DATE: 20211012
